FAERS Safety Report 16979835 (Version 1)
Quarter: 2019Q4

REPORT INFORMATION
  Report Type: Spontaneous
  Country: CA (occurrence: CA)
  Receive Date: 20191031
  Receipt Date: 20191031
  Transmission Date: 20200122
  Serious: Yes (Other)
  Sender: FDA-Public Use
  Company Number: CA-ABBVIE-19K-028-2984093-00

PATIENT
  Age: 15 Year
  Sex: Female

DRUGS (2)
  1. LUPRON DEPOT [Suspect]
     Active Substance: LEUPROLIDE ACETATE
     Indication: PRODUCT USED FOR UNKNOWN INDICATION
     Route: 030
  2. ORILISSA [Suspect]
     Active Substance: ELAGOLIX SODIUM
     Indication: PRODUCT USED FOR UNKNOWN INDICATION
     Route: 048

REACTIONS (8)
  - Bone density decreased [Unknown]
  - Endometriosis [Unknown]
  - Pain [Unknown]
  - Menopausal symptoms [Unknown]
  - Fear [Unknown]
  - Adenomyosis [Unknown]
  - Mobility decreased [Unknown]
  - Arthralgia [Unknown]
